FAERS Safety Report 23086228 (Version 1)
Quarter: 2023Q4

REPORT INFORMATION
  Report Type: Report from Study
  Country: CN (occurrence: CN)
  Receive Date: 20231019
  Receipt Date: 20231019
  Transmission Date: 20240110
  Serious: Yes (Hospitalization)
  Sender: FDA-Public Use
  Company Number: CN-Eisai Medical Research-EC-2023-136282

PATIENT
  Age: 74 Year
  Sex: Male
  Weight: 48 kg

DRUGS (7)
  1. LENVATINIB [Suspect]
     Active Substance: LENVATINIB
     Indication: Oesophageal cancer metastatic
     Dosage: STARTING DOSE AT 20MG FLUCTUATED DOSE
     Route: 048
     Dates: start: 20220728, end: 20230311
  2. LENVATINIB [Suspect]
     Active Substance: LENVATINIB
     Dosage: 14 MG, FLUCTUATED DOSE
     Route: 048
     Dates: start: 20230424, end: 20230806
  3. PEMBROLIZUMAB [Suspect]
     Active Substance: PEMBROLIZUMAB
     Indication: Oesophageal cancer metastatic
     Route: 041
     Dates: start: 20220728, end: 20230217
  4. PEMBROLIZUMAB [Suspect]
     Active Substance: PEMBROLIZUMAB
     Route: 041
     Dates: start: 20230424, end: 20230718
  5. LEVOTHYROXINE SODIUM [Concomitant]
     Active Substance: LEVOTHYROXINE SODIUM
     Dates: start: 20230215, end: 20230314
  6. POTASSIUM CHLORIDE [Concomitant]
     Active Substance: POTASSIUM CHLORIDE
     Dates: start: 20230307, end: 20230313
  7. HERBALS\DIAMMONIUM GLYCYRRHIZINATE [Concomitant]
     Active Substance: HERBALS\DIAMMONIUM GLYCYRRHIZINATE
     Dates: start: 20230307, end: 20230315

REACTIONS (1)
  - Malaise [Recovered/Resolved with Sequelae]

NARRATIVE: CASE EVENT DATE: 20230312
